FAERS Safety Report 9970095 (Version 2)
Quarter: 2014Q1

REPORT INFORMATION
  Report Type: Spontaneous
  Country: IT (occurrence: IT)
  Receive Date: 20140306
  Receipt Date: 20140318
  Transmission Date: 20141002
  Serious: Yes (Hospitalization)
  Sender: FDA-Public Use
  Company Number: PHHY2014IT025776

PATIENT
  Age: 68 Year
  Sex: Male

DRUGS (6)
  1. TASIGNA [Suspect]
     Indication: CHRONIC MYELOID LEUKAEMIA TRANSFORMATION
     Dosage: 600 MG, DAILY
     Route: 048
     Dates: start: 20121231, end: 20131118
  2. VALSARTAN [Concomitant]
     Dosage: 40 MG, UNK
     Route: 048
  3. FUROSEMIDE [Concomitant]
     Dosage: 25 MG, UNK
     Route: 048
  4. CANRENONE [Concomitant]
     Dosage: 100 MG, UNK
     Route: 048
  5. DOXAZOSINE [Concomitant]
     Dosage: 4 MG, UNK
     Route: 048
  6. DUTASTERIDE [Concomitant]
     Dosage: 0.5 MG, UNK
     Route: 048

REACTIONS (2)
  - Pleural effusion [Recovered/Resolved]
  - Dyspnoea [Recovered/Resolved]
